FAERS Safety Report 23573168 (Version 1)
Quarter: 2024Q1

REPORT INFORMATION
  Report Type: Spontaneous
  Country: US (occurrence: US)
  Receive Date: 20240227
  Receipt Date: 20240227
  Transmission Date: 20240409
  Serious: No
  Sender: FDA-Public Use
  Company Number: US-SANDOZ-SDZ2024US016809

PATIENT
  Sex: Female

DRUGS (1)
  1. ALBUTEROL SULFATE [Suspect]
     Active Substance: ALBUTEROL SULFATE
     Indication: Asthma
     Dosage: PATIENT USES 2 PUFFS EVERY 4 TO 6 HOURS FOR ASTHMA.
     Route: 048
     Dates: start: 202402

REACTIONS (3)
  - Product use issue [Unknown]
  - Product physical consistency issue [Unknown]
  - Device delivery system issue [Unknown]
